FAERS Safety Report 15932219 (Version 3)
Quarter: 2019Q1

REPORT INFORMATION
  Report Type: Spontaneous
  Country: US (occurrence: US)
  Receive Date: 20190207
  Receipt Date: 20190320
  Transmission Date: 20190417
  Serious: No
  Sender: FDA-Public Use
  Company Number: US-PFIZER INC-2019048792

PATIENT
  Age: 65 Year
  Sex: Female
  Weight: 58.97 kg

DRUGS (3)
  1. EUCRISA [Suspect]
     Active Substance: CRISABOROLE
     Indication: ECZEMA
     Dosage: UNK
     Dates: start: 2018
  2. EUCRISA [Suspect]
     Active Substance: CRISABOROLE
     Indication: SKIN EXFOLIATION
  3. EUCRISA [Suspect]
     Active Substance: CRISABOROLE
     Indication: ERYTHEMA

REACTIONS (1)
  - Drug ineffective [Not Recovered/Not Resolved]

NARRATIVE: CASE EVENT DATE: 2018
